FAERS Safety Report 20612671 (Version 2)
Quarter: 2022Q1

REPORT INFORMATION
  Report Type: Spontaneous
  Country: GB (occurrence: GB)
  Receive Date: 20220318
  Receipt Date: 20220323
  Transmission Date: 20220424
  Serious: Yes (Disabling, Other)
  Sender: FDA-Public Use
  Company Number: GB-MHRA-MED-202203021104128600-LLTQS

PATIENT
  Sex: Female

DRUGS (8)
  1. HYDROCORTISONE SODIUM SUCCINATE [Suspect]
     Active Substance: HYDROCORTISONE SODIUM SUCCINATE
  2. MOMETASONE FUROATE [Suspect]
     Active Substance: MOMETASONE FUROATE
     Dates: start: 20190101, end: 20220204
  3. BETAMETHASONE VALERATE [Suspect]
     Active Substance: BETAMETHASONE VALERATE
  4. BETNOVATE [Suspect]
     Active Substance: BETAMETHASONE
     Indication: Eczema
     Dates: end: 20220205
  5. CLOBETASOL [Suspect]
     Active Substance: CLOBETASOL
  6. HYDROQUINONE [Suspect]
     Active Substance: HYDROQUINONE
  7. TRETINOIN [Suspect]
     Active Substance: TRETINOIN
  8. PROTOPIC [Suspect]
     Active Substance: TACROLIMUS

REACTIONS (7)
  - Insomnia [Not Recovered/Not Resolved]
  - Rash erythematous [Not Recovered/Not Resolved]
  - Skin exfoliation [Not Recovered/Not Resolved]
  - Neuralgia [Not Recovered/Not Resolved]
  - Skin burning sensation [Not Recovered/Not Resolved]
  - Pruritus [Not Recovered/Not Resolved]
  - Skin weeping [Not Recovered/Not Resolved]
